FAERS Safety Report 12281678 (Version 1)
Quarter: 2016Q2

REPORT INFORMATION
  Report Type: Spontaneous
  Country: US (occurrence: None)
  Receive Date: 20160418
  Receipt Date: 20160418
  Transmission Date: 20160815
  Serious: No
  Sender: FDA-Public Use
  Company Number: None

PATIENT
  Age: 73 Year
  Sex: Female

DRUGS (1)
  1. XALKORI [Suspect]
     Active Substance: CRIZOTINIB

REACTIONS (4)
  - Intracranial aneurysm [None]
  - Myalgia [None]
  - Swelling [None]
  - Chest pain [None]

NARRATIVE: CASE EVENT DATE: 20160415
